FAERS Safety Report 18906870 (Version 2)
Quarter: 2021Q2

REPORT INFORMATION
  Report Type: Spontaneous
  Country: US (occurrence: US)
  Receive Date: 20210217
  Receipt Date: 20210427
  Transmission Date: 20210717
  Serious: Yes (Other)
  Sender: FDA-Public Use
  Company Number: US-PFIZER INC-2021144098

PATIENT
  Age: 41 Year
  Sex: Male

DRUGS (3)
  1. XELJANZ [Suspect]
     Active Substance: TOFACITINIB CITRATE
     Dosage: 5 MG
  2. XELJANZ [Suspect]
     Active Substance: TOFACITINIB CITRATE
     Dosage: 10 MG, 2X/DAY
     Route: 048
  3. XELJANZ [Suspect]
     Active Substance: TOFACITINIB CITRATE
     Indication: COLITIS ULCERATIVE
     Dosage: 10 MG, 2X/DAY
     Route: 048
     Dates: start: 201808

REACTIONS (9)
  - Drug ineffective [Recovered/Resolved]
  - Condition aggravated [Unknown]
  - Product dose omission issue [Unknown]
  - Product use issue [Unknown]
  - Depression [Recovering/Resolving]
  - Haematochezia [Unknown]
  - Haemorrhoids [Unknown]
  - Discouragement [Recovering/Resolving]
  - Off label use [Unknown]
